FAERS Safety Report 8970786 (Version 1)
Quarter: 2012Q4

REPORT INFORMATION
  Report Type: Report from Study
  Country: US (occurrence: US)
  Receive Date: 20121218
  Receipt Date: 20121218
  Transmission Date: 20130627
  Serious: Yes (Hospitalization)
  Sender: FDA-Public Use
  Company Number: US-009507513-1212USA004664

PATIENT
  Age: 66 Year
  Sex: Male
  Weight: 108.7 kg

DRUGS (27)
  1. TEMODAR [Suspect]
     Indication: GLIOBLASTOMA MULTIFORME
     Dosage: 180 mg, qd
     Route: 048
     Dates: start: 20091019, end: 20091122
  2. BEVACIZUMAB [Suspect]
     Indication: GLIOBLASTOMA MULTIFORME
     Dosage: 1190 mg once in 2 weeks
     Route: 042
     Dates: start: 20091019, end: 20091117
  3. NITROSTAT [Concomitant]
     Dosage: 0.4 mg, 1 in 1 D prn
  4. DECADRON (DEXAMETHASONE) [Concomitant]
     Dosage: 4 mg, tid
     Dates: start: 20091129
  5. PRILOSEC [Concomitant]
     Dosage: UNK UNK, qd
     Route: 048
  6. LEVETIRACETAM [Concomitant]
     Dosage: q750 mg, bid
     Dates: start: 20091129
  7. ENDOCET [Concomitant]
     Dosage: 1-2 as necessary
     Route: 048
  8. ZOLOFT [Concomitant]
     Dosage: UNK UNK, qd
  9. LEVAQUIN [Concomitant]
     Dosage: UNK
  10. METRONIDAZOLE [Concomitant]
     Dosage: 500 mg, tid
  11. HUMULIN [Concomitant]
     Dosage: 30 units, bid
  12. TRAZALON [Concomitant]
     Dosage: 50 mg, (1 in 1 d) hs
  13. CIPRO [Concomitant]
     Dosage: 500 mg, bid
  14. DEXAMETHASONE [Concomitant]
     Dosage: 20 mg/2 ml 1 in 1  prn
     Route: 042
     Dates: start: 20091129
  15. IMODIUM [Concomitant]
     Dosage: 2 mg/1 cap every 4 hours
     Dates: start: 20091129
  16. LORAZEPAM [Concomitant]
     Dosage: 1 mg three per day as needed
     Route: 048
     Dates: start: 20091129
  17. MAGNESIUM HYDROXIDE [Concomitant]
     Dosage: 30-45 ML every day as needed
     Dates: start: 20091129
  18. METOCLOPRAMIDE [Concomitant]
     Dosage: 60 ml/62 ML ecery 3 hours as needed
     Route: 042
     Dates: start: 20091129
  19. PROCHLORPERAZINE [Concomitant]
     Dosage: 10 mg/1TAB every 4 hours as needed
     Route: 048
     Dates: start: 20091129
  20. PROCHLORPERAZINE [Concomitant]
     Dosage: 10 mg/2 ml  every 4 hours  prn
     Route: 030
     Dates: start: 20091129
  21. SENNA [Concomitant]
     Dosage: 2 per 1 day senna 6.6 mg/ docusate sodium 5
     Route: 048
     Dates: start: 20091129
  22. DOCUSATE SODIUM [Concomitant]
     Dosage: 5 (8.6 mg 2 in 1 D)
     Route: 048
     Dates: start: 20091129
  23. DOCUSATE SODIUM [Concomitant]
     Dosage: UNK
     Route: 048
     Dates: start: 20091129
  24. TEMAZEPAM [Concomitant]
     Dosage: 5 mg, 1 in 1 D, as needed at bed time
     Route: 048
     Dates: start: 20091129
  25. ZOLPIDEM TARTRATE [Concomitant]
     Dosage: 5 mg,1 in 1 D, as needed at bed time
     Route: 048
     Dates: start: 20091129
  26. TYLENOL [Concomitant]
     Dosage: UNK UNK, qd
     Dates: start: 20091129
  27. MAGNESIUM HYDROXIDE [Concomitant]
     Dosage: UNK
     Dates: start: 20091129

REACTIONS (1)
  - Febrile neutropenia [Recovered/Resolved]
